FAERS Safety Report 6255120-6 (Version None)
Quarter: 2009Q3

REPORT INFORMATION
  Report Type: 
  Country: None (occurrence: None)
  Receive Date: 20090702
  Receipt Date: 20090623
  Transmission Date: 20100115
  Serious: Yes (Hospitalization)
  Sender: FDA-Public Use
  Company Number: NL-TEVA-199863ISR

PATIENT
  Sex: Male

DRUGS (9)
  1. METHOTREXATE [Suspect]
     Indication: RHEUMATOID ARTHRITIS
     Dates: start: 20000101, end: 20050901
  2. PREDNISONE [Concomitant]
     Dates: start: 19980101
  3. FOLIC ACID [Concomitant]
     Dates: start: 20000101
  4. SIMVASTATIN [Concomitant]
  5. OMEPRAZOLE [Concomitant]
  6. METOPROLOL TARTRATE [Concomitant]
  7. CARBASALATE CALCIUM [Concomitant]
  8. VALSARTAN [Concomitant]
  9. PARACETAMOL [Concomitant]

REACTIONS (1)
  - OSTEOARTHROPATHY [None]
